FAERS Safety Report 6440347-0 (Version None)
Quarter: 2009Q4

REPORT INFORMATION
  Report Type: 
  Country: None (occurrence: None)
  Receive Date: 20091113
  Receipt Date: 20091103
  Transmission Date: 20100525
  Serious: Yes (Other)
  Sender: FDA-Public Use
  Company Number: PHHY2009FR24819

PATIENT
  Age: 55 Year
  Sex: Female

DRUGS (4)
  1. ZOMETA [Suspect]
     Indication: BREAST CANCER
     Dosage: UNK
  2. ZOMETA [Suspect]
     Indication: METASTASES TO BONE
  3. CHEMOTHERAPEUTICS,OTHER [Concomitant]
  4. MORPHINE [Concomitant]

REACTIONS (5)
  - ACCIDENTAL OVERDOSE [None]
  - BONE PAIN [None]
  - FATIGUE [None]
  - MALIGNANT NEOPLASM PROGRESSION [None]
  - PYREXIA [None]
